FAERS Safety Report 17965071 (Version 1)
Quarter: 2020Q2

REPORT INFORMATION
  Report Type: Spontaneous
  Country: FR (occurrence: FR)
  Receive Date: 20200630
  Receipt Date: 20200630
  Transmission Date: 20200714
  Serious: Yes (Hospitalization)
  Sender: FDA-Public Use
  Company Number: NVSC2020FR183265

PATIENT
  Age: 38 Year
  Sex: Female

DRUGS (5)
  1. PARACETAMOL [Suspect]
     Active Substance: ACETAMINOPHEN
     Indication: SUICIDE ATTEMPT
     Dosage: 16 G, QD
     Route: 048
     Dates: start: 20190801, end: 20190801
  2. OMEPRAZOLE. [Suspect]
     Active Substance: OMEPRAZOLE
     Indication: SUICIDE ATTEMPT
     Dosage: 160 MG, QD
     Route: 048
     Dates: start: 20190801, end: 20190801
  3. ZOLOFT [Suspect]
     Active Substance: SERTRALINE HYDROCHLORIDE
     Indication: SUICIDE ATTEMPT
     Dosage: 200 MG, QD
     Route: 048
     Dates: start: 20190801, end: 20190801
  4. ACTISKENAN [Suspect]
     Active Substance: MORPHINE SULFATE
     Indication: SUICIDE ATTEMPT
     Dosage: 120 MG, QD
     Route: 048
     Dates: start: 20190801, end: 20190801
  5. SKENAN [Suspect]
     Active Substance: MORPHINE SULFATE
     Indication: SUICIDE ATTEMPT
     Dosage: 40 MG, Q12H (320 MG)
     Route: 048
     Dates: start: 20190801, end: 20190801

REACTIONS (2)
  - Cholestasis [Recovering/Resolving]
  - Toxicity to various agents [Recovered/Resolved]

NARRATIVE: CASE EVENT DATE: 20190801
